FAERS Safety Report 9149779 (Version 1)
Quarter: 2013Q1

REPORT INFORMATION
  Report Type: Spontaneous
  Country: US (occurrence: US)
  Receive Date: 20130308
  Receipt Date: 20130308
  Transmission Date: 20140127
  Serious: Yes (Other)
  Sender: FDA-Public Use
  Company Number: 2013SP000638

PATIENT
  Age: 35 Year
  Sex: Male

DRUGS (1)
  1. LATUDA [Suspect]
     Indication: BIPOLAR DISORDER
     Route: 048

REACTIONS (5)
  - Chest pain [Unknown]
  - Red blood cell count decreased [Not Recovered/Not Resolved]
  - Haematocrit decreased [Not Recovered/Not Resolved]
  - Haemoglobin decreased [Not Recovered/Not Resolved]
  - Glycosylated haemoglobin increased [Not Recovered/Not Resolved]
